FAERS Safety Report 11714067 (Version 6)
Quarter: 2017Q1

REPORT INFORMATION
  Report Type: Spontaneous
  Country: US (occurrence: US)
  Receive Date: 20151109
  Receipt Date: 20170113
  Transmission Date: 20170428
  Serious: Yes (Other)
  Sender: FDA-Public Use
  Company Number: US-PFIZER INC-2015370614

PATIENT
  Age: 67 Year
  Sex: Male
  Weight: 68.27 kg

DRUGS (2)
  1. LYRICA [Suspect]
     Active Substance: PREGABALIN
     Dosage: 150 MG, 2X/DAY (150MG IN THE MORNING AND 150MG AT NIGHT)
     Route: 048
     Dates: start: 2000
  2. LYRICA [Suspect]
     Active Substance: PREGABALIN
     Indication: NERVE INJURY
     Dosage: 300 MG, UNK

REACTIONS (13)
  - Peripheral swelling [Unknown]
  - Hyperhidrosis [Unknown]
  - Gingival disorder [Not Recovered/Not Resolved]
  - Haemorrhage [Unknown]
  - Pain in extremity [Not Recovered/Not Resolved]
  - Pruritus [Unknown]
  - Musculoskeletal discomfort [Unknown]
  - Skin discolouration [Not Recovered/Not Resolved]
  - Dizziness [Not Recovered/Not Resolved]
  - Intentional product misuse [Unknown]
  - Back injury [Unknown]
  - Burning sensation [Unknown]
  - Vision blurred [Unknown]

NARRATIVE: CASE EVENT DATE: 2000
